FAERS Safety Report 23033766 (Version 1)
Quarter: 2023Q4

REPORT INFORMATION
  Report Type: Report from Study
  Country: US (occurrence: US)
  Receive Date: 20231005
  Receipt Date: 20231005
  Transmission Date: 20240109
  Serious: Yes (Death, Hospitalization, Other)
  Sender: FDA-Public Use
  Company Number: US-EXELIXIS-XL18423068862

PATIENT
  Age: 74 Year
  Sex: Male
  Weight: 55.5 kg

DRUGS (4)
  1. CABOZANTINIB [Suspect]
     Active Substance: CABOZANTINIB
     Indication: Renal cell carcinoma
     Dosage: 40 MG, QD
     Route: 048
     Dates: start: 20210224
  2. CABOZANTINIB [Suspect]
     Active Substance: CABOZANTINIB
     Dosage: 20 MG, QOD
     Route: 048
     Dates: start: 20230508
  3. NIVOLUMAB [Suspect]
     Active Substance: NIVOLUMAB
     Indication: Renal cell carcinoma
     Dosage: 480 MG ON DAY 1 OF CYCLE 28 DAYS
     Route: 042
     Dates: start: 20210224
  4. IPILIMUMAB [Suspect]
     Active Substance: IPILIMUMAB
     Indication: Renal cell carcinoma
     Dosage: UNK

REACTIONS (5)
  - Mesenteric haemorrhage [Fatal]
  - Respiratory failure [Unknown]
  - Pericardial effusion [Unknown]
  - Pleural effusion [Unknown]
  - Abdominal pain [Unknown]

NARRATIVE: CASE EVENT DATE: 20230705
